FAERS Safety Report 15227912 (Version 1)
Quarter: 2018Q3

REPORT INFORMATION
  Report Type: Spontaneous
  Country: ZA (occurrence: ZA)
  Receive Date: 20180801
  Receipt Date: 20180801
  Transmission Date: 20181010
  Serious: Yes (Hospitalization)
  Sender: FDA-Public Use
  Company Number: ZA-PFIZER INC-2018292725

PATIENT
  Age: 71 Year
  Sex: Female

DRUGS (16)
  1. YELATE [Suspect]
     Active Substance: DULOXETINE HYDROCHLORIDE
     Dosage: UNK
  2. LYRICA [Suspect]
     Active Substance: PREGABALIN
     Dosage: UNK
  3. DISPRIN CARDIOCARE [Suspect]
     Active Substance: ASPIRIN
     Dosage: UNK
  4. EPITEC [Suspect]
     Active Substance: LAMOTRIGINE
     Dosage: UNK
  5. TRAMAZAC CO [Suspect]
     Active Substance: ACETAMINOPHEN\TRAMADOL
     Dosage: UNK
  6. BETACOR /00008501/ [Suspect]
     Active Substance: BETAMETHASONE
     Dosage: UNK
  7. DOPAQUEL [Suspect]
     Active Substance: QUETIAPINE
     Dosage: UNK
  8. FLEXOCAM [Suspect]
     Active Substance: MELOXICAM
     Dosage: 15 MG, UNK
  9. OXYBUTYNIN MYLAN [Suspect]
     Active Substance: OXYBUTYNIN
     Dosage: 5 MG, UNK
  10. ALTOSEC /00661201/ [Suspect]
     Active Substance: OMEPRAZOLE
     Dosage: 20 MG, UNK
  11. PREMARIN [Suspect]
     Active Substance: ESTROGENS, CONJUGATED
     Dosage: UNK
  12. PURICOS [Suspect]
     Active Substance: ALLOPURINOL
     Dosage: 100 MG, UNK
  13. ELTROXIN [Suspect]
     Active Substance: LEVOTHYROXINE
     Dosage: 50 UG, UNK
  14. FUROSEMIDE. [Suspect]
     Active Substance: FUROSEMIDE
     Dosage: UNK
  15. BRAZEPAM [Suspect]
     Active Substance: BROMAZEPAM
     Dosage: UNK
  16. DORMONOCT [Suspect]
     Active Substance: LOPRAZOLAM
     Dosage: UNK

REACTIONS (1)
  - Lung infection [Unknown]
